FAERS Safety Report 24719016 (Version 3)
Quarter: 2024Q4

REPORT INFORMATION
  Report Type: Spontaneous
  Country: CN (occurrence: CN)
  Receive Date: 20241210
  Receipt Date: 20241217
  Transmission Date: 20250114
  Serious: Yes (Hospitalization)
  Sender: PFIZER
  Company Number: CN-PFIZER INC-PV202400157123

PATIENT
  Age: 53 Year
  Sex: Female
  Weight: 56 kg

DRUGS (6)
  1. CYTARABINE [Suspect]
     Active Substance: CYTARABINE
     Indication: Myelodysplastic syndrome
     Dosage: 30 MG D1-7
     Route: 041
     Dates: start: 20241013, end: 20241020
  2. CYTARABINE [Suspect]
     Active Substance: CYTARABINE
     Dosage: 30 MG QD
     Route: 058
     Dates: start: 20241119
  3. AZACITIDINE [Suspect]
     Active Substance: AZACITIDINE
     Indication: Myelodysplastic syndrome
     Dosage: 100 MG D1-5
     Route: 041
     Dates: start: 20241013, end: 20241018
  4. AZACITIDINE [Suspect]
     Active Substance: AZACITIDINE
     Dosage: 100 MG QD IVGTT
     Route: 041
     Dates: start: 20241119
  5. OMACETAXINE MEPESUCCINATE [Suspect]
     Active Substance: OMACETAXINE MEPESUCCINATE
     Indication: Myelodysplastic syndrome
     Dosage: 3 MG D1-5
     Dates: start: 20241013, end: 20241018
  6. DOLASETRON MESYLATE [Concomitant]
     Active Substance: DOLASETRON MESYLATE
     Indication: Antiemetic supportive care
     Dosage: UNK

REACTIONS (7)
  - Myelosuppression [Unknown]
  - Asthenia [Unknown]
  - Ecchymosis [Unknown]
  - Mouth haemorrhage [Unknown]
  - Abscess oral [Unknown]
  - Neoplasm progression [Unknown]
  - Off label use [Unknown]

NARRATIVE: CASE EVENT DATE: 20241013
